FAERS Safety Report 6168505-3 (Version None)
Quarter: 2009Q2

REPORT INFORMATION
  Report Type: 
  Country: None (occurrence: None)
  Receive Date: 20090427
  Receipt Date: 20090417
  Transmission Date: 20091009
  Serious: Yes (Hospitalization)
  Sender: FDA-Public Use
  Company Number: A0780402A

PATIENT
  Age: 58 Year
  Sex: Male
  Weight: 90.9 kg

DRUGS (10)
  1. AVANDIA [Suspect]
     Indication: DIABETES MELLITUS
     Dosage: 8MG PER DAY
     Route: 048
     Dates: start: 20040101, end: 20060601
  2. METFORMIN HCL [Concomitant]
  3. GLUCOPHAGE [Concomitant]
  4. METOPROLOL SUCCINATE [Concomitant]
  5. CELEBREX [Concomitant]
  6. ZOCOR [Concomitant]
  7. LESCOL [Concomitant]
  8. LIPITOR [Concomitant]
  9. FLUOXETINE [Concomitant]
  10. DOXYCYCLINE [Concomitant]

REACTIONS (3)
  - ACUTE CORONARY SYNDROME [None]
  - ARTERIOSCLEROSIS CORONARY ARTERY [None]
  - MYOCARDIAL INFARCTION [None]
